FAERS Safety Report 19950401 (Version 1)
Quarter: 2021Q4

REPORT INFORMATION
  Report Type: Spontaneous
  Country: CN (occurrence: CN)
  Receive Date: 20211013
  Receipt Date: 20211013
  Transmission Date: 20220303
  Serious: Yes (Other)
  Sender: FDA-Public Use
  Company Number: CN-ROCHE-2930981

PATIENT
  Age: 65 Year
  Sex: Female

DRUGS (17)
  1. MABTHERA [Suspect]
     Active Substance: RITUXIMAB
     Indication: Diffuse large B-cell lymphoma
     Dosage: R-CHOP
     Route: 065
     Dates: start: 20210326
  2. MABTHERA [Suspect]
     Active Substance: RITUXIMAB
     Dosage: R-GEMOX
     Route: 065
     Dates: start: 20210622
  3. MABTHERA [Suspect]
     Active Substance: RITUXIMAB
     Dosage: RITUXIMAB + LENALIDOMIDE + ETOPOSIDE
     Route: 065
     Dates: start: 20210712
  4. MABTHERA [Suspect]
     Active Substance: RITUXIMAB
     Dosage: R-HYPERCAVD
     Route: 065
     Dates: start: 20210816
  5. CYCLOPHOSPHAMIDE [Concomitant]
     Active Substance: CYCLOPHOSPHAMIDE
     Indication: Diffuse large B-cell lymphoma
     Dosage: R-CHOP
     Dates: start: 20210326
  6. CYCLOPHOSPHAMIDE [Concomitant]
     Active Substance: CYCLOPHOSPHAMIDE
     Dosage: R-HYPERCAVD
     Dates: start: 20210816
  7. DOXORUBICIN [Concomitant]
     Active Substance: DOXORUBICIN
     Indication: Diffuse large B-cell lymphoma
     Dosage: R-CHOP
     Dates: start: 20210326
  8. VINCRISTINE [Concomitant]
     Active Substance: VINCRISTINE
     Indication: Diffuse large B-cell lymphoma
     Dosage: R-CHOP
     Dates: start: 20210326
  9. PREDNISONE [Concomitant]
     Active Substance: PREDNISONE
     Indication: Diffuse large B-cell lymphoma
     Dosage: R-CHOP
     Dates: start: 20210326
  10. GEMCITABINE [Concomitant]
     Active Substance: GEMCITABINE
     Indication: Diffuse large B-cell lymphoma
     Dosage: R-GEMOX
     Dates: start: 20210622
  11. OXALIPLATIN [Concomitant]
     Active Substance: OXALIPLATIN
     Indication: Diffuse large B-cell lymphoma
     Dosage: R-GEMOX
     Dates: start: 20210622
  12. LENALIDOMIDE [Concomitant]
     Active Substance: LENALIDOMIDE
     Indication: Diffuse large B-cell lymphoma
     Dosage: RITUXIMAB + LENALIDOMIDE + ETOPOSIDE
     Dates: start: 20210712
  13. ETOPOSIDE [Concomitant]
     Active Substance: ETOPOSIDE
     Indication: Diffuse large B-cell lymphoma
     Dosage: RITUXIMAB + LENALIDOMIDE + ETOPOSIDE
     Dates: start: 20210712
  14. EPIRUBICIN [Concomitant]
     Active Substance: EPIRUBICIN
     Indication: Diffuse large B-cell lymphoma
     Dosage: R-HYPERCAVD
     Dates: start: 20210816
  15. DEXAMETHASONE [Concomitant]
     Active Substance: DEXAMETHASONE
     Indication: Diffuse large B-cell lymphoma
     Dosage: R-HYPERCAVD
     Dates: start: 20210816
  16. VINDESINE [Concomitant]
     Active Substance: VINDESINE
     Indication: Diffuse large B-cell lymphoma
     Dosage: R-HYPERCAVD
     Dates: start: 20210816
  17. MESNA [Concomitant]
     Active Substance: MESNA
     Indication: Diffuse large B-cell lymphoma
     Dosage: R-HYPERCAVD
     Dates: start: 20210816

REACTIONS (4)
  - Myelosuppression [Unknown]
  - Hepatic failure [Unknown]
  - Febrile infection [Unknown]
  - Transaminases decreased [Unknown]
